APPROVED DRUG PRODUCT: SEVELAMER CARBONATE
Active Ingredient: SEVELAMER CARBONATE
Strength: 800MG
Dosage Form/Route: TABLET;ORAL
Application: A215537 | Product #001 | TE Code: AB
Applicant: MICRO LABS LTD
Approved: Feb 7, 2022 | RLD: No | RS: No | Type: RX